FAERS Safety Report 23467057 (Version 1)
Quarter: 2024Q1

REPORT INFORMATION
  Report Type: Spontaneous
  Country: US (occurrence: None)
  Receive Date: 20240131
  Receipt Date: 20240131
  Transmission Date: 20240410
  Serious: Yes (Hospitalization)
  Sender: FDA-Public Use
  Company Number: None

PATIENT
  Sex: Female

DRUGS (3)
  1. REPATHA [Suspect]
     Active Substance: EVOLOCUMAB
  2. LEXAPRO [Suspect]
     Active Substance: ESCITALOPRAM OXALATE
  3. COVID-19 VACCINE NOS [Suspect]
     Active Substance: COVID-19 VACCINE NOS

REACTIONS (7)
  - Pyrexia [None]
  - Nausea [None]
  - Vomiting [None]
  - Retching [None]
  - Weight decreased [None]
  - Anxiety [None]
  - Depressed mood [None]
